APPROVED DRUG PRODUCT: CORTISONE ACETATE
Active Ingredient: CORTISONE ACETATE
Strength: 25MG/ML
Dosage Form/Route: INJECTABLE;INJECTION
Application: A085677 | Product #001
Applicant: WATSON LABORATORIES INC
Approved: Approved Prior to Jan 1, 1982 | RLD: No | RS: No | Type: DISCN